FAERS Safety Report 8604984-7 (Version None)
Quarter: 2012Q3

REPORT INFORMATION
  Report Type: 
  Country: None (occurrence: None)
  Receive Date: 20120820
  Receipt Date: 20120814
  Transmission Date: 20120928
  Serious: Yes (Life-Threatening)
  Sender: FDA-Public Use
  Company Number: JP-PFIZER INC-2012197995

PATIENT
  Age: 57 Year
  Sex: Male
  Weight: 40.9 kg

DRUGS (13)
  1. LOXONIN [Concomitant]
     Dosage: 60 MG, 3X/DAY
     Dates: start: 20120602
  2. ALFAROL [Concomitant]
     Dosage: 0.5 UG, 1X/DAY
     Dates: start: 20120602
  3. LENDORMIN [Concomitant]
     Dosage: 0.25 MG, 1X/DAY
     Dates: start: 20120608
  4. RABEPRAZOLE SODIUM [Concomitant]
     Dosage: 10 MG, 1X/DAY
     Dates: start: 20120602
  5. PROCHLORPERAZINE [Concomitant]
     Dosage: 5 MG, 3X/DAY
     Dates: start: 20120602
  6. HALOPERIDOL [Concomitant]
     Dosage: 1.5 MG, 1X/DAY BEFORE SLEEP
     Dates: start: 20120612
  7. XALKORI [Suspect]
     Indication: NON-SMALL CELL LUNG CANCER
     Dosage: 250 MG, 2X/DAY
     Route: 048
     Dates: start: 20120524, end: 20120615
  8. DECADRON PHOSPHATE [Concomitant]
     Dosage: 2 MG, 1X/DAY
     Dates: start: 20120604
  9. OXYCONTIN [Concomitant]
     Dosage: 40 MG, 2X/DAY
     Dates: start: 20120606
  10. PETROLATUM [Concomitant]
     Dosage: UNK
     Dates: start: 20120614
  11. PRIMPERAN TAB [Concomitant]
     Dosage: 5 MG, 2X/DAY
     Dates: start: 20120602
  12. MAGNESIUM OXIDE [Concomitant]
     Dosage: 660 MG, 3X/DAY
     Dates: start: 20120607
  13. ASPARA-CA [Concomitant]
     Dosage: 400 MG, 3X/DAY
     Dates: start: 20120607

REACTIONS (1)
  - CHOLECYSTITIS [None]
